FAERS Safety Report 18439510 (Version 7)
Quarter: 2021Q3

REPORT INFORMATION
  Report Type: Spontaneous
  Country: CO (occurrence: CO)
  Receive Date: 20201028
  Receipt Date: 20210818
  Transmission Date: 20211014
  Serious: Yes (Hospitalization, Other)
  Sender: FDA-Public Use
  Company Number: CO-AMGEN-COLSP2020174548

PATIENT
  Age: 72 Year
  Sex: Male

DRUGS (3)
  1. ENBREL [Suspect]
     Active Substance: ETANERCEPT
     Dosage: 50 MG
     Route: 058
     Dates: end: 202003
  2. ENBREL [Suspect]
     Active Substance: ETANERCEPT
     Dosage: 50 MG, 1 APPLICATION EVERY 8 DAYS
     Route: 058
     Dates: start: 201910, end: 202011
  3. ENBREL [Suspect]
     Active Substance: ETANERCEPT
     Indication: RHEUMATOID ARTHRITIS
     Dosage: 50 MG, WEEKLY
     Route: 058
     Dates: start: 2019, end: 202010

REACTIONS (14)
  - Arthritis infective [Recovering/Resolving]
  - Memory impairment [Unknown]
  - Bacterial infection [Not Recovered/Not Resolved]
  - Myocardial infarction [Not Recovered/Not Resolved]
  - Influenza [Not Recovered/Not Resolved]
  - Herpes virus infection [Recovering/Resolving]
  - Decreased immune responsiveness [Recovering/Resolving]
  - Off label use [Unknown]
  - Headache [Unknown]
  - Gait inability [Unknown]
  - Syncope [Unknown]
  - Herpes zoster [Recovering/Resolving]
  - Arterial disorder [Unknown]
  - Peripheral swelling [Unknown]

NARRATIVE: CASE EVENT DATE: 201910
